FAERS Safety Report 6889446-X (Version None)
Quarter: 2010Q3

REPORT INFORMATION
  Report Type: 
  Country: None (occurrence: None)
  Receive Date: 20100730
  Receipt Date: 20080303
  Transmission Date: 20110219
  Serious: No
  Sender: FDA-Public Use
  Company Number: US-PFIZER INC-2008020649

PATIENT
  Sex: Female
  Weight: 77.11 kg

DRUGS (3)
  1. LIPITOR [Suspect]
     Indication: BLOOD CHOLESTEROL
     Dates: start: 20070101
  2. LOVASTATIN [Concomitant]
  3. SYNTHROID [Concomitant]
     Indication: HYPOTHYROIDISM

REACTIONS (5)
  - ARTHRITIS [None]
  - HEPATIC STEATOSIS [None]
  - MYALGIA [None]
  - OSTEOPOROSIS [None]
  - WRONG TECHNIQUE IN DRUG USAGE PROCESS [None]
